FAERS Safety Report 12118134 (Version 3)
Quarter: 2016Q2

REPORT INFORMATION
  Report Type: Spontaneous
  Country: US (occurrence: US)
  Receive Date: 20160226
  Receipt Date: 20160520
  Transmission Date: 20160815
  Serious: No
  Sender: FDA-Public Use
  Company Number: US-VIFOR (INTERNATIONAL) INC.-VIT-2016-00604

PATIENT
  Age: 83 Year
  Sex: Male
  Weight: 80.7 kg

DRUGS (1)
  1. MIRCERA [Suspect]
     Active Substance: METHOXY POLYETHYLENE GLYCOL-EPOETIN BETA
     Indication: PRODUCT USED FOR UNKNOWN INDICATION
     Dates: start: 20151117, end: 20151117

REACTIONS (2)
  - Tenderness [Recovered/Resolved]
  - Nipple pain [Recovered/Resolved]

NARRATIVE: CASE EVENT DATE: 20151117
